FAERS Safety Report 18324103 (Version 2)
Quarter: 2020Q4

REPORT INFORMATION
  Report Type: Spontaneous
  Country: US (occurrence: US)
  Receive Date: 20200928
  Receipt Date: 20201109
  Transmission Date: 20210113
  Serious: No
  Sender: FDA-Public Use
  Company Number: US-PFIZER INC-2020371775

PATIENT
  Age: 76 Year
  Sex: Female
  Weight: 127.01 kg

DRUGS (2)
  1. DICLOFENAC SODIUM. [Suspect]
     Active Substance: DICLOFENAC SODIUM
     Indication: ARTHRITIS
     Dosage: 50 MG, 3X/DAY
     Route: 048
     Dates: start: 202008
  2. MISOPROSTOL. [Suspect]
     Active Substance: MISOPROSTOL
     Indication: ARTHRITIS
     Dosage: 200 UG, 3X/DAY
     Route: 048
     Dates: start: 202008

REACTIONS (3)
  - Dyspepsia [Unknown]
  - Off label use [Unknown]
  - Drug ineffective for unapproved indication [Unknown]

NARRATIVE: CASE EVENT DATE: 202008
